FAERS Safety Report 17322955 (Version 1)
Quarter: 2020Q1

REPORT INFORMATION
  Report Type: Spontaneous
  Country: US (occurrence: US)
  Receive Date: 20200124
  Receipt Date: 20200124
  Transmission Date: 20200409
  Serious: No
  Sender: FDA-Public Use
  Company Number: None

PATIENT
  Sex: Female
  Weight: 62.55 kg

DRUGS (5)
  1. XPOVIO [Suspect]
     Active Substance: SELINEXOR
     Indication: PLASMA CELL MYELOMA
     Dosage: ?          OTHER FREQUENCY:ONCE A WEEK;?
     Route: 048
     Dates: start: 20191104, end: 20200124
  2. ELIQUIS [Concomitant]
     Active Substance: APIXABAN
  3. ACYCLOVIR 400MG [Concomitant]
     Active Substance: ACYCLOVIR
  4. EMEND TRI-PACK [Concomitant]
  5. PROVENTIL 108 [Concomitant]

REACTIONS (1)
  - Pancytopenia [None]
